FAERS Safety Report 20630528 (Version 3)
Quarter: 2022Q3

REPORT INFORMATION
  Report Type: Spontaneous
  Country: CA (occurrence: CA)
  Receive Date: 20220324
  Receipt Date: 20220824
  Transmission Date: 20221027
  Serious: Yes (Other)
  Sender: FDA-Public Use
  Company Number: CA-CELLTRION INC.-2021CA000451

PATIENT

DRUGS (7)
  1. INFLECTRA [Suspect]
     Active Substance: INFLIXIMAB-DYYB
     Indication: Crohn^s disease
     Dosage: 500 MG, EVERY 4 WEEKS
     Route: 042
     Dates: start: 20210122, end: 20210612
  2. INFLECTRA [Suspect]
     Active Substance: INFLIXIMAB-DYYB
     Dosage: 600 MG
     Route: 042
  3. INFLECTRA [Suspect]
     Active Substance: INFLIXIMAB-DYYB
     Dosage: 600 MG, EVERY 4 WEEKS
     Route: 042
     Dates: start: 20210710
  4. INFLECTRA [Suspect]
     Active Substance: INFLIXIMAB-DYYB
     Dosage: 600 MG, EVERY 4 WEEKS
     Route: 042
     Dates: start: 20210904
  5. INFLECTRA [Suspect]
     Active Substance: INFLIXIMAB-DYYB
     Dosage: 600 MG, EVERY 4 WEEKS
     Route: 042
     Dates: start: 20210929
  6. INFLECTRA [Suspect]
     Active Substance: INFLIXIMAB-DYYB
     Dosage: 600 MG, EVERY 4 WEEKS
     Route: 042
     Dates: start: 20220219
  7. INFLECTRA [Suspect]
     Active Substance: INFLIXIMAB-DYYB
     Dosage: 500 MG, EVERY 4 WEEKS
     Route: 042
     Dates: start: 20220323

REACTIONS (10)
  - Rectal abscess [Not Recovered/Not Resolved]
  - Off label use [Unknown]
  - Off label use [Unknown]
  - Intentional product use issue [Unknown]
  - Drug level above therapeutic [Unknown]
  - Abdominal pain [Not Recovered/Not Resolved]
  - Fistula [Unknown]
  - Aphthous ulcer [Not Recovered/Not Resolved]
  - Condition aggravated [Not Recovered/Not Resolved]
  - Stress [Unknown]

NARRATIVE: CASE EVENT DATE: 20210801
